FAERS Safety Report 10659778 (Version 3)
Quarter: 2015Q1

REPORT INFORMATION
  Report Type: Spontaneous
  Country: BR (occurrence: BR)
  Receive Date: 20141217
  Receipt Date: 20150313
  Transmission Date: 20150720
  Serious: Yes (Hospitalization, Other)
  Sender: FDA-Public Use
  Company Number: BR-PFIZER INC-2014343234

PATIENT
  Age: 67 Year
  Sex: Male
  Weight: 82 kg

DRUGS (7)
  1. ATORVASTATIN [Concomitant]
     Active Substance: ATORVASTATIN
     Indication: BLOOD CHOLESTEROL ABNORMAL
     Dosage: 20 MG (1 TABLET), 1X/DAY
     Dates: start: 2012
  2. CARVEDILOL. [Concomitant]
     Active Substance: CARVEDILOL
     Indication: CARDIAC DISORDER
     Dosage: 12.5 MG (ONE TABLET), 2X/DAY (EVERY 12 HOURS)
     Dates: start: 2013
  3. LYRICA [Suspect]
     Active Substance: PREGABALIN
     Indication: SPINAL PAIN
     Dosage: 75 MG, 2X/DAY
     Route: 048
     Dates: start: 20130225
  4. AAS [Concomitant]
     Active Substance: ASPIRIN
     Indication: ANTICOAGULANT THERAPY
     Dosage: ONE TABLET OF 100MG, DAILY
     Dates: start: 2010
  5. TADALAFIL [Concomitant]
     Active Substance: TADALAFIL
     Indication: PROSTATIC DISORDER
     Dosage: ONE TABLET OF UNSPECIFIED DOSAGE, DAILY
     Dates: start: 201408
  6. ENALAPRIL [Concomitant]
     Active Substance: ENALAPRIL
     Indication: BLOOD PRESSURE ABNORMAL
     Dosage: 20 MG (TWO TABLETS OF 10MG), 2X/DAY (IN THE MORNING AND AT NIGHT)
     Dates: start: 1984
  7. GLIFAGE XR [Concomitant]
     Active Substance: METFORMIN HYDROCHLORIDE
     Indication: BLOOD INSULIN ABNORMAL
     Dosage: ONE TABLET OF UNSPECIFIED DOSAGE, DAILY
     Dates: start: 2010

REACTIONS (4)
  - Pain in extremity [Not Recovered/Not Resolved]
  - Drug ineffective [Not Recovered/Not Resolved]
  - Cardiac disorder [Unknown]
  - Venous occlusion [Unknown]

NARRATIVE: CASE EVENT DATE: 20130901
